FAERS Safety Report 5236045-1 (Version None)
Quarter: 2007Q1

REPORT INFORMATION
  Report Type: 
  Country: None (occurrence: None)
  Receive Date: 20070212
  Receipt Date: 20070131
  Transmission Date: 20070707
  Serious: Yes (Death)
  Sender: FDA-Public Use
  Company Number: GB-ELI_LILLY_AND_COMPANY-GB200702000042

PATIENT
  Age: 84 Year
  Sex: Male
  Weight: 47.6 kg

DRUGS (14)
  1. FORTEO [Suspect]
     Indication: OSTEOPOROSIS
     Dosage: UNK, UNK
     Route: 058
     Dates: start: 20051101, end: 20061101
  2. ASPIRIN [Concomitant]
     Dosage: 150 MG, DAILY (1/D)
  3. BECOTIDE [Concomitant]
  4. CALCIUM [Concomitant]
  5. CO-PROXAMOL [Concomitant]
  6. DIAZEPAM [Concomitant]
     Dosage: 2 MG, UNK
  7. DILTIAZEM [Concomitant]
     Dosage: 1 D/F, 3/D
  8. LACTULOSE [Concomitant]
     Dosage: UNK, AS NEEDED
  9. MEBEVERINE [Concomitant]
  10. NITROLINGUAL [Concomitant]
     Dosage: UNK, AS NEEDED
     Route: 060
  11. OMEPRAZOLE [Concomitant]
     Dosage: 60 MG, DAILY (1/D)
  12. VENTOLIN                                /SCH/ [Concomitant]
     Dosage: 2 D/F, 4/D
  13. VITAMIN D [Concomitant]
  14. ZOPICLONE [Concomitant]
     Dosage: 1 D/F, DAILY (1/D)

REACTIONS (2)
  - ARTERIOSCLEROSIS CORONARY ARTERY [None]
  - MYOCARDIAL ISCHAEMIA [None]
